FAERS Safety Report 7364312-4 (Version None)
Quarter: 2011Q1

REPORT INFORMATION
  Report Type: 
  Country: None (occurrence: None)
  Receive Date: 20110321
  Receipt Date: 20110311
  Transmission Date: 20110831
  Serious: Yes (Other)
  Sender: FDA-Public Use
  Company Number: B0706978A

PATIENT
  Age: 78 Year
  Sex: Male

DRUGS (2)
  1. AVODART [Suspect]
     Route: 065
  2. FINASTERIDE [Suspect]
     Route: 065

REACTIONS (2)
  - ERECTILE DYSFUNCTION [None]
  - BREAST PAIN [None]
